FAERS Safety Report 20659906 (Version 5)
Quarter: 2022Q2

REPORT INFORMATION
  Report Type: Report from Study
  Country: IT (occurrence: None)
  Receive Date: 20220331
  Receipt Date: 20220502
  Transmission Date: 20220721
  Serious: Yes (Hospitalization)
  Sender: FDA-Public Use
  Company Number: IT-ROCHE-3056513

PATIENT
  Age: 52 Year
  Sex: Female
  Weight: 65 kg

DRUGS (8)
  1. ATEZOLIZUMAB [Suspect]
     Active Substance: ATEZOLIZUMAB
     Indication: Invasive breast carcinoma
     Dosage: LAST DOSE BEFORE SAE?18/01/2022
     Route: 041
     Dates: start: 20211115
  2. PERTUZUMAB [Suspect]
     Active Substance: PERTUZUMAB
     Indication: Invasive breast carcinoma
     Dosage: LAST DOSE BEFORE SAE 01/03/2022 (420 MG)
     Route: 042
     Dates: start: 20211115, end: 20220301
  3. TRASTUZUMAB [Suspect]
     Active Substance: TRASTUZUMAB
     Indication: Invasive breast carcinoma
     Dosage: LAST DOSE BEFORE SAE 01/03/2022 (384 MG)
     Route: 041
     Dates: start: 20211115, end: 20220301
  4. PACLITAXEL [Suspect]
     Active Substance: PACLITAXEL
     Indication: Invasive breast carcinoma
     Dosage: LAST DOSE BEFORE SAE 01/03/2022 (132 MG)
     Route: 042
     Dates: start: 20211115, end: 20220308
  5. CARBOPLATIN [Suspect]
     Active Substance: CARBOPLATIN
     Indication: Invasive breast carcinoma
     Dosage: AT AUC 2?LAST DOSE BEFORE SAE 01/03/2022 (180 MG)
     Route: 042
     Dates: start: 20211115, end: 20220308
  6. CERNEVIT [Concomitant]
     Active Substance: VITAMINS
     Indication: Enteritis
     Dates: start: 20220315, end: 20220315
  7. CEFIXIME [Concomitant]
     Active Substance: CEFIXIME
     Indication: Enteritis
     Dates: start: 20220311, end: 20220315
  8. CIPROFLOXACIN [Concomitant]
     Active Substance: CIPROFLOXACIN
     Indication: Enteritis
     Dates: start: 20220315, end: 20220316

REACTIONS (1)
  - Immune-mediated enterocolitis [Recovered/Resolved]

NARRATIVE: CASE EVENT DATE: 20220317
